FAERS Safety Report 6445029-7 (Version None)
Quarter: 2009Q4

REPORT INFORMATION
  Report Type: 
  Country: None (occurrence: None)
  Receive Date: 20091118
  Receipt Date: 20091111
  Transmission Date: 20100525
  Serious: Yes (Other)
  Sender: FDA-Public Use
  Company Number: GB-MERCK-0911GBR00049

PATIENT
  Age: 66 Year
  Sex: Male

DRUGS (7)
  1. JANUVIA [Suspect]
     Indication: TYPE 2 DIABETES MELLITUS
     Route: 048
     Dates: start: 20090730, end: 20090914
  2. COSOPT [Concomitant]
     Route: 047
  3. LISINOPRIL [Concomitant]
     Route: 048
  4. BIMATOPROST [Concomitant]
     Route: 047
  5. METFORMIN [Concomitant]
     Route: 048
  6. SIMVASTATIN [Concomitant]
     Route: 048
  7. TAMSULOSIN HYDROCHLORIDE [Concomitant]
     Route: 048

REACTIONS (3)
  - GINGIVAL SWELLING [None]
  - GINGIVAL ULCERATION [None]
  - GLOSSODYNIA [None]
